FAERS Safety Report 8862955 (Version 1)
Quarter: 2012Q4

REPORT INFORMATION
  Report Type: 
  Country: US (occurrence: US)
  Receive Date: 20121026
  Receipt Date: 20121026
  Transmission Date: 20130627
  Serious: No
  Sender: FDA-Public Use
  Company Number: US-ASTRAZENECA-2005UW05520

PATIENT
  Age: 61 Year
  Sex: Female
  Weight: 54.4 kg

DRUGS (7)
  1. CRESTOR [Suspect]
     Indication: BLOOD CHOLESTEROL INCREASED
     Route: 048
     Dates: start: 2003
  2. CRESTOR [Suspect]
     Indication: BLOOD CHOLESTEROL INCREASED
     Route: 048
     Dates: start: 200401
  3. CRESTOR [Suspect]
     Indication: BLOOD CHOLESTEROL INCREASED
     Route: 048
     Dates: start: 2004
  4. LIPITOR [Concomitant]
  5. PEPCID AC [Concomitant]
     Indication: DYSPEPSIA
  6. OLIVE LEAF EXTRACT [Concomitant]
  7. IMITREX [Concomitant]
     Indication: MIGRAINE

REACTIONS (5)
  - Gastrointestinal disorder [Recovered/Resolved]
  - Cholecystitis chronic [Unknown]
  - Back pain [Unknown]
  - Impaired driving ability [Unknown]
  - Myalgia [Unknown]
